FAERS Safety Report 10187184 (Version 3)
Quarter: 2014Q2

REPORT INFORMATION
  Report Type: Spontaneous
  Country: DE (occurrence: DE)
  Receive Date: 20140522
  Receipt Date: 20140630
  Transmission Date: 20141212
  Serious: Yes (Death)
  Sender: FDA-Public Use
  Company Number: DE-JNJFOC-20140508293

PATIENT
  Sex: Male

DRUGS (25)
  1. ZYTIGA [Suspect]
     Indication: PROSTATE CANCER
     Route: 048
     Dates: start: 20140225
  2. DOXAZOSIN [Concomitant]
     Indication: HYPERTENSION
     Route: 065
  3. DOXAZOSIN [Concomitant]
     Indication: ARRHYTHMIA
     Route: 065
  4. DOXAZOSIN [Concomitant]
     Indication: CORONARY ARTERY DISEASE
     Route: 065
  5. DOXAZOSIN [Concomitant]
     Indication: ARTERIAL OCCLUSIVE DISEASE
     Route: 065
  6. VERAPAMIL [Concomitant]
     Indication: HYPERTENSION
     Route: 065
  7. VERAPAMIL [Concomitant]
     Indication: ARRHYTHMIA
     Route: 065
  8. VERAPAMIL [Concomitant]
     Indication: ARTERIAL OCCLUSIVE DISEASE
     Route: 065
  9. VERAPAMIL [Concomitant]
     Indication: CORONARY ARTERY DISEASE
     Route: 065
  10. TRIAMTEREN [Concomitant]
     Indication: HYPERTENSION
     Route: 065
  11. TRIAMTEREN [Concomitant]
     Indication: ARRHYTHMIA
     Route: 065
  12. TRIAMTEREN [Concomitant]
     Indication: ARTERIAL OCCLUSIVE DISEASE
     Route: 065
  13. TRIAMTEREN [Concomitant]
     Indication: CORONARY ARTERY DISEASE
     Route: 065
  14. DIGOXIN [Concomitant]
     Indication: ARRHYTHMIA
     Route: 065
  15. DIGOXIN [Concomitant]
     Indication: ARTERIAL OCCLUSIVE DISEASE
     Route: 065
  16. DIGOXIN [Concomitant]
     Indication: CORONARY ARTERY DISEASE
     Route: 065
  17. DIGOXIN [Concomitant]
     Indication: HYPERTENSION
     Route: 065
  18. MARCUMAR [Concomitant]
     Indication: ARRHYTHMIA
     Route: 065
  19. MARCUMAR [Concomitant]
     Indication: ARTERIAL OCCLUSIVE DISEASE
     Route: 065
  20. MARCUMAR [Concomitant]
     Indication: CORONARY ARTERY DISEASE
     Route: 065
  21. MARCUMAR [Concomitant]
     Indication: HYPERTENSION
     Route: 065
  22. PANTOZOL [Concomitant]
     Indication: HYPERTENSION
     Route: 065
  23. PANTOZOL [Concomitant]
     Indication: ARTERIAL OCCLUSIVE DISEASE
     Route: 065
  24. PANTOZOL [Concomitant]
     Indication: CORONARY ARTERY DISEASE
     Route: 065
  25. PANTOZOL [Concomitant]
     Indication: ARRHYTHMIA
     Route: 065

REACTIONS (1)
  - Death [Fatal]
